FAERS Safety Report 5774380-9 (Version None)
Quarter: 2008Q2

REPORT INFORMATION
  Report Type: 
  Country: None (occurrence: None)
  Receive Date: 20080616
  Receipt Date: 20080612
  Transmission Date: 20081010
  Serious: Yes (Life-Threatening)
  Sender: FDA-Public Use
  Company Number: JP-SANOFI-SYNTHELABO-F01200800242

PATIENT
  Sex: Male

DRUGS (13)
  1. OXALIPLATIN [Suspect]
     Indication: RECTAL CANCER METASTATIC
     Route: 042
     Dates: start: 20071212, end: 20071212
  2. DIOVAN [Concomitant]
     Dosage: UNK
     Dates: start: 20071128, end: 20071205
  3. DECADRON [Concomitant]
     Dosage: UNK
     Dates: start: 20071003, end: 20071128
  4. KYTRIL [Concomitant]
     Dosage: UNK
     Dates: start: 20071003, end: 20071212
  5. LIPITOR [Concomitant]
     Dosage: UNK
     Dates: start: 20070910, end: 20071205
  6. URINORM [Concomitant]
     Dosage: UNK
     Dates: start: 20070910, end: 20071205
  7. AMARYL [Concomitant]
     Dosage: UNK
     Dates: start: 20070910, end: 20071205
  8. RENIVACE [Concomitant]
     Dosage: UNK
     Dates: start: 20070910, end: 20071205
  9. ADALAT [Concomitant]
     Dosage: UNK
     Dates: start: 20070910, end: 20071205
  10. BEVACIZUMAB [Suspect]
     Route: 042
     Dates: start: 20071212, end: 20071212
  11. IRINOTECAN HCL [Suspect]
     Dosage: UNK
     Route: 041
  12. CALCIUM LEVOFOLINATE [Suspect]
     Route: 042
     Dates: start: 20071212, end: 20071212
  13. FLUOROURACIL [Suspect]
     Route: 042
     Dates: start: 20071212, end: 20071214

REACTIONS (1)
  - ACUTE RESPIRATORY DISTRESS SYNDROME [None]
